FAERS Safety Report 4997217-4 (Version None)
Quarter: 2006Q2

REPORT INFORMATION
  Report Type: 
  Country: None (occurrence: None)
  Receive Date: 20060505
  Receipt Date: 20060505
  Transmission Date: 20061013
  Serious: Yes (Disabling, Other)
  Sender: FDA-Public Use
  Company Number: None

PATIENT
  Age: 41 Year
  Sex: Female

DRUGS (1)
  1. HURRICANE SPRAY 20% BEUTLICH PHARMACEUTICALS [Suspect]
     Indication: ANAESTHESIA
     Dosage: 2 SPRAYS      PO
     Route: 048
     Dates: start: 20041201, end: 20041201

REACTIONS (5)
  - CYANOSIS [None]
  - HYPOTENSION [None]
  - METHAEMOGLOBINAEMIA [None]
  - OXYGEN SATURATION DECREASED [None]
  - POST PROCEDURAL COMPLICATION [None]
